FAERS Safety Report 8331583-7 (Version None)
Quarter: 2012Q2

REPORT INFORMATION
  Report Type: 
  Country: None (occurrence: None)
  Receive Date: 20120502
  Receipt Date: 20120420
  Transmission Date: 20120825
  Serious: No
  Sender: FDA-Public Use
  Company Number: US-AMGEN-USASP2012025264

PATIENT
  Age: 45 Year
  Sex: Female

DRUGS (7)
  1. ENBREL [Suspect]
     Indication: ANKYLOSING SPONDYLITIS
     Dosage: 50 MG, QWK
     Dates: start: 20120401
  2. VITAMIN D [Concomitant]
     Dosage: 1 UNK, UNK
  3. LORAZEPAM [Concomitant]
     Dosage: 1 MG, UNK
  4. FISH OIL [Concomitant]
     Dosage: 1 MG, UNK
  5. GLUCOSAMINE [Concomitant]
     Dosage: 1 MG, UNK
  6. MSM [Concomitant]
     Dosage: 1 MG, UNK
  7. PREDNISONE [Concomitant]
     Dosage: 1 MG, UNK

REACTIONS (3)
  - MALAISE [None]
  - FATIGUE [None]
  - INFLUENZA [None]
